FAERS Safety Report 25495269 (Version 1)
Quarter: 2025Q2

REPORT INFORMATION
  Report Type: Spontaneous
  Country: US (occurrence: US)
  Receive Date: 20250630
  Receipt Date: 20250630
  Transmission Date: 20250717
  Serious: No
  Sender: MERCK SHARP & DOHME LLC
  Company Number: US-009507513-2293338

PATIENT
  Sex: Female

DRUGS (4)
  1. PEMBROLIZUMAB [Suspect]
     Active Substance: PEMBROLIZUMAB
     Indication: Gestational trophoblastic tumour
  2. CISPLATIN [Concomitant]
     Active Substance: CISPLATIN
     Indication: Gestational trophoblastic tumour
  3. ETOPOSIDE [Concomitant]
     Active Substance: ETOPOSIDE
     Indication: Gestational trophoblastic tumour
  4. LENVATINIB [Concomitant]
     Active Substance: LENVATINIB
     Indication: Gestational trophoblastic tumour

REACTIONS (1)
  - Product use in unapproved indication [Unknown]
